FAERS Safety Report 21438675 (Version 1)
Quarter: 2022Q4

REPORT INFORMATION
  Report Type: Spontaneous
  Country: TH (occurrence: TH)
  Receive Date: 20221011
  Receipt Date: 20221011
  Transmission Date: 20230113
  Serious: No
  Sender: FDA-Public Use
  Company Number: TH-ALKEM LABORATORIES LIMITED-TH-ALKEM-2022-09988

PATIENT
  Age: 36 Year
  Sex: Male

DRUGS (7)
  1. ASPIRIN [Suspect]
     Active Substance: ASPIRIN
     Indication: Nasal polyps
     Dosage: 600 MILLIGRAM, OD, DAILY
     Route: 065
  2. ASPIRIN [Suspect]
     Active Substance: ASPIRIN
     Indication: Asthma
     Dosage: 300 MILLIGRAM
     Route: 065
  3. ASPIRIN [Suspect]
     Active Substance: ASPIRIN
     Indication: Nasal inflammation
     Dosage: 160 MILLIGRAM
     Route: 065
  4. IBUPROFEN [Suspect]
     Active Substance: IBUPROFEN
     Indication: Nasal polyps
     Dosage: UNK
     Route: 065
  5. IBUPROFEN [Suspect]
     Active Substance: IBUPROFEN
     Indication: Asthma
  6. IBUPROFEN [Suspect]
     Active Substance: IBUPROFEN
     Indication: Nasal inflammation
  7. OMEPRAZOLE [Concomitant]
     Active Substance: OMEPRAZOLE
     Indication: Gastrointestinal disorder
     Dosage: 20 MILLIGRAM
     Route: 065

REACTIONS (4)
  - Drug hypersensitivity [Unknown]
  - Gastrointestinal disorder [Unknown]
  - Eye pruritus [Unknown]
  - Nasal congestion [Unknown]
